FAERS Safety Report 10077376 (Version 2)
Quarter: 2014Q2

REPORT INFORMATION
  Report Type: Spontaneous
  Country: US (occurrence: US)
  Receive Date: 20140414
  Receipt Date: 20140414
  Transmission Date: 20141212
  Serious: No
  Sender: FDA-Public Use
  Company Number: US-BANPHARM-20131436

PATIENT
  Age: 88 Year
  Sex: Female
  Weight: 58.51 kg

DRUGS (6)
  1. ALEVE LIQUID GELS 220 MG [Suspect]
     Dosage: 1 DF, Q8H,
     Route: 048
     Dates: start: 201306
  2. ALEVE GEL CAPS [Suspect]
     Dosage: 1 DF, Q8H,
     Route: 065
  3. CHOLESTEROL MEDICATION [Concomitant]
  4. VITAMIN D [Concomitant]
  5. BAYER ASPIRIN [Concomitant]
  6. THYROID MEDICATION [Concomitant]

REACTIONS (2)
  - Foreign body [Recovered/Resolved]
  - Incorrect dose administered [Unknown]
